FAERS Safety Report 14485627 (Version 4)
Quarter: 2018Q2

REPORT INFORMATION
  Report Type: Other
  Country: IT (occurrence: IT)
  Receive Date: 20180205
  Receipt Date: 20180422
  Transmission Date: 20180711
  Serious: Yes (Hospitalization, Other)
  Sender: FDA-Public Use
  Company Number: IT-APOTEX-2018AP006208

PATIENT
  Age: 20 Year
  Sex: Female

DRUGS (2)
  1. QUETIAPINE. [Suspect]
     Active Substance: QUETIAPINE
     Indication: PRODUCT USED FOR UNKNOWN INDICATION
     Dosage: UNK DF, 60 DOSAGE FORMS IN TOTAL
     Route: 048
     Dates: start: 20180102, end: 20180102
  2. LORAZEPAM. [Suspect]
     Active Substance: LORAZEPAM
     Indication: PRODUCT USED FOR UNKNOWN INDICATION
     Dosage: 70 DOSAGE FORMS IN TOTAL
     Route: 048
     Dates: start: 20180102, end: 20180102

REACTIONS (4)
  - Drug abuse [Unknown]
  - Suicide attempt [Recovered/Resolved]
  - Sopor [Recovered/Resolved]
  - Overdose [Unknown]

NARRATIVE: CASE EVENT DATE: 20180102
